FAERS Safety Report 10445143 (Version 1)
Quarter: 2014Q3

REPORT INFORMATION
  Report Type: Spontaneous
  Country: IT (occurrence: IT)
  Receive Date: 20140910
  Receipt Date: 20140910
  Transmission Date: 20150326
  Serious: Yes (Hospitalization)
  Sender: FDA-Public Use
  Company Number: IT-SA-2014SA121853

PATIENT
  Age: 100 Year
  Sex: Female

DRUGS (4)
  1. CLEXANE [Concomitant]
     Active Substance: ENOXAPARIN SODIUM
     Dosage: STRENGTH:2000UI AXA INJECTABLE SOLUTION, 6 PRE-FILLED SYRINGES.
     Route: 058
  2. FUROSEMIDE. [Suspect]
     Active Substance: FUROSEMIDE
     Route: 048
     Dates: start: 20140101, end: 20140807
  3. LANOXIN [Concomitant]
     Active Substance: DIGOXIN
     Dosage: STRENGTH:0.125 MG TABLET, 1 BISLYER OF 30 TABLETS
     Route: 048
  4. XANAX [Concomitant]
     Active Substance: ALPRAZOLAM
     Dosage: STRENGTH:0.75 MG/ML ORAL DROPS, SOLUTION VIAL 20 ML?DOSE: 5 DROPS.
     Route: 048

REACTIONS (3)
  - Hypokalaemia [Unknown]
  - Electrocardiogram abnormal [Unknown]
  - Dehydration [Unknown]

NARRATIVE: CASE EVENT DATE: 20140807
